FAERS Safety Report 7351743-1 (Version None)
Quarter: 2011Q1

REPORT INFORMATION
  Report Type: 
  Country: None (occurrence: None)
  Receive Date: 20110315
  Receipt Date: 20110309
  Transmission Date: 20110831
  Serious: Yes (Other)
  Sender: FDA-Public Use
  Company Number: US-BAXTER-2011BH005875

PATIENT
  Age: 5 Year
  Sex: Female
  Weight: 18 kg

DRUGS (12)
  1. ACETAMINOPHEN [Concomitant]
     Indication: PREMEDICATION
     Route: 048
  2. GAMMAGARD LIQUID [Suspect]
     Indication: OFF LABEL USE
     Route: 042
  3. GAMMAGARD LIQUID [Suspect]
     Route: 042
     Dates: start: 20090801
  4. RANITIDINE [Concomitant]
     Route: 048
  5. DEPAKOTE [Concomitant]
     Indication: CONVULSION
     Route: 048
  6. GAMMAGARD LIQUID [Suspect]
     Indication: ENCEPHALITIS ALLERGIC
     Route: 042
  7. GAMMAGARD LIQUID [Suspect]
     Route: 042
     Dates: start: 20090801
  8. GAMMAGARD LIQUID [Suspect]
     Route: 042
     Dates: start: 20090801
  9. CLONAZEPAM [Concomitant]
     Indication: CONVULSION
     Route: 048
  10. GAMMAGARD LIQUID [Suspect]
     Indication: EPILEPSY
     Route: 042
  11. KEPPRA [Concomitant]
     Route: 048
  12. ZONISAMIDE [Concomitant]
     Route: 048

REACTIONS (2)
  - CONVULSION [None]
  - CONDITION AGGRAVATED [None]
